FAERS Safety Report 5596977-1 (Version None)
Quarter: 2008Q1

REPORT INFORMATION
  Report Type: 
  Country: None (occurrence: None)
  Receive Date: 20080121
  Receipt Date: 20080108
  Transmission Date: 20080703
  Serious: Yes (Other)
  Sender: FDA-Public Use
  Company Number: US-BAYER-US-2007-011331

PATIENT
  Age: 29 Year
  Sex: Female
  Weight: 77 kg

DRUGS (1)
  1. MIRENA [Suspect]
     Indication: CONTRACEPTION
     Route: 015
     Dates: start: 20070221, end: 20070305

REACTIONS (4)
  - DEVICE BREAKAGE [None]
  - IUD MIGRATION [None]
  - PUBIC PAIN [None]
  - UTERINE RUPTURE [None]
